FAERS Safety Report 6075749-8 (Version None)
Quarter: 2009Q1

REPORT INFORMATION
  Report Type: 
  Country: None (occurrence: None)
  Receive Date: 20090212
  Receipt Date: 20090202
  Transmission Date: 20090719
  Serious: Yes (Other)
  Sender: FDA-Public Use
  Company Number: US-BAXTER-2009BH001957

PATIENT
  Age: 49 Year
  Sex: Female

DRUGS (4)
  1. 5% DEXTROSE INJECTION [Suspect]
     Indication: LYME DISEASE
     Route: 042
     Dates: start: 20090127, end: 20090201
  2. ROCEPHIN [Concomitant]
     Indication: LYME DISEASE
     Route: 042
     Dates: start: 20090127, end: 20090201
  3. PLAVIX [Concomitant]
     Indication: CEREBROVASCULAR ACCIDENT
     Route: 048
     Dates: start: 20080101
  4. ASPIRIN [Concomitant]
     Indication: CEREBROVASCULAR ACCIDENT
     Route: 048
     Dates: start: 20080101

REACTIONS (3)
  - CHEST DISCOMFORT [None]
  - DYSPNOEA [None]
  - MALAISE [None]
